FAERS Safety Report 8608726 (Version 2)
Quarter: 2013Q4

REPORT INFORMATION
  Report Type: Spontaneous
  Country: CA (occurrence: CA)
  Receive Date: 20120611
  Receipt Date: 20131004
  Transmission Date: 20140711
  Serious: Yes (Life-Threatening)
  Sender: FDA-Public Use
  Company Number: CA-ASTRAZENECA-2012SE38029

PATIENT
  Age: 27 Year
  Sex: Female

DRUGS (3)
  1. PROPOFOL [Suspect]
     Indication: CONVULSION
     Dosage: 10.7 MG/KG/HOUR
     Route: 042
  2. LEVETIRACETAM [Concomitant]
  3. CLOBAZAM [Concomitant]

REACTIONS (4)
  - Propofol infusion syndrome [Recovered/Resolved]
  - Metabolic acidosis [Recovered/Resolved]
  - Arrhythmia [Recovered/Resolved]
  - Shock [Recovered/Resolved]
